FAERS Safety Report 9171738 (Version 1)
Quarter: 2013Q1

REPORT INFORMATION
  Report Type: Spontaneous
  Country: RO (occurrence: None)
  Receive Date: 20130308
  Receipt Date: 20130308
  Transmission Date: 20140127
  Serious: Yes (Disabling)
  Sender: FDA-Public Use
  Company Number: LIT-015-13-RO

PATIENT
  Age: 16 Year
  Sex: Male

DRUGS (2)
  1. HUMAN IMMUNOGLOBULIN G [Suspect]
     Indication: HYPOGAMMAGLOBULINAEMIA
     Route: 042
     Dates: start: 1994, end: 2006
  2. IMMUNOGLOBULIN HUMAN NORMAL [Suspect]
     Dates: start: 2006, end: 2009

REACTIONS (16)
  - Neurodegenerative disorder [None]
  - Mental impairment [None]
  - Ataxia [None]
  - Coordination abnormal [None]
  - Extrapyramidal disorder [None]
  - Mood swings [None]
  - Dementia [None]
  - Dysarthria [None]
  - Muscle contractions involuntary [None]
  - Pyramidal tract syndrome [None]
  - Dysphagia [None]
  - Gait disturbance [None]
  - Incontinence [None]
  - Convulsion [None]
  - Progressive multifocal leukoencephalopathy [None]
  - Creutzfeldt-Jakob disease [None]
